FAERS Safety Report 8561020-9 (Version None)
Quarter: 2012Q3

REPORT INFORMATION
  Report Type: 
  Country: None (occurrence: None)
  Receive Date: 20120802
  Receipt Date: 20111101
  Transmission Date: 20120928
  Serious: No
  Sender: FDA-Public Use
  Company Number: US-BRISTOL-MYERS SQUIBB COMPANY-15920978

PATIENT
  Sex: Male

DRUGS (2)
  1. TRUVADA [Suspect]
     Dosage: 1 DF: 1 UNIT NOS
     Route: 048
  2. REYATAZ [Suspect]
     Route: 048

REACTIONS (1)
  - OVERDOSE [None]
